APPROVED DRUG PRODUCT: APIXABAN
Active Ingredient: APIXABAN
Strength: 5MG
Dosage Form/Route: TABLET;ORAL
Application: A210156 | Product #002
Applicant: TORRENT PHARMACEUTICALS LTD
Approved: Dec 17, 2024 | RLD: No | RS: No | Type: DISCN